FAERS Safety Report 4394484-5 (Version None)
Quarter: 2004Q3

REPORT INFORMATION
  Report Type: 
  Country: None (occurrence: None)
  Receive Date: 20040709
  Receipt Date: 20040709
  Transmission Date: 20050211
  Serious: Yes (Other)
  Sender: FDA-Public Use
  Company Number: None

PATIENT
  Age: 72 Year
  Sex: Male
  Weight: 98 kg

DRUGS (7)
  1. ALTACE [Suspect]
     Indication: CORONARY ARTERY DISEASE
     Dosage: ORAL
     Route: 048
     Dates: start: 20040630, end: 20040705
  2. VANCOMYCIN [Concomitant]
  3. DIGOXIN [Concomitant]
  4. METOPROLOL [Concomitant]
  5. BUMETANIDE [Concomitant]
  6. PROPOXPHENE-APAP [Concomitant]
  7. APAP-CODEINE #3 [Concomitant]

REACTIONS (1)
  - RASH [None]
